FAERS Safety Report 20486480 (Version 4)
Quarter: 2022Q1

REPORT INFORMATION
  Report Type: Spontaneous
  Country: US (occurrence: US)
  Receive Date: 20220217
  Receipt Date: 20220328
  Transmission Date: 20220423
  Serious: Yes (Other)
  Sender: FDA-Public Use
  Company Number: US-BAYER-2022A021110

PATIENT
  Age: 49 Year
  Sex: Male

DRUGS (5)
  1. KOGENATE FS [Suspect]
     Active Substance: ANTIHEMOPHILIC FACTOR, HUMAN RECOMBINANT
     Dosage: 2140 IU
  2. KOGENATE FS [Suspect]
     Active Substance: ANTIHEMOPHILIC FACTOR, HUMAN RECOMBINANT
     Dosage: 1 DF, EVERY 12 HOURS SINCE THE SURGERY
     Dates: start: 20220204
  3. KOGENATE FS [Suspect]
     Active Substance: ANTIHEMOPHILIC FACTOR, HUMAN RECOMBINANT
     Dosage: 30 DF, FOR THE ROTATOR CUFF REPAIR ON THE LEFT SHOULDER AND THE ACTIVE BLEED TREAMENT
  4. KOGENATE FS [Suspect]
     Active Substance: ANTIHEMOPHILIC FACTOR, HUMAN RECOMBINANT
     Dosage: UNK, PROPHY DOSE PRIOR TO PHYSICAL THERAPY
  5. KOGENATE FS [Suspect]
     Active Substance: ANTIHEMOPHILIC FACTOR, HUMAN RECOMBINANT
     Dosage: 2 DF, FOR THE RIGHT SHOULDER BLEED TREATMENT

REACTIONS (6)
  - Central venous catheterisation [None]
  - Shoulder operation [None]
  - Rotator cuff repair [None]
  - Haemorrhage [None]
  - Haemarthrosis [None]
  - Physiotherapy [None]

NARRATIVE: CASE EVENT DATE: 20220203
